FAERS Safety Report 25110982 (Version 1)
Quarter: 2025Q1

REPORT INFORMATION
  Report Type: Spontaneous
  Country: PT (occurrence: US)
  Receive Date: 20250324
  Receipt Date: 20250324
  Transmission Date: 20250409
  Serious: No
  Sender: Steriscience PTE
  Company Number: PT-STERISCIENCE B.V.-2024-ST-000870

PATIENT
  Age: 33 Year
  Sex: Female

DRUGS (3)
  1. LABETALOL [Suspect]
     Active Substance: LABETALOL
     Indication: Systolic hypertension
     Route: 065
  2. LABETALOL [Suspect]
     Active Substance: LABETALOL
     Route: 065
  3. PROPYLTHIOURACIL [Suspect]
     Active Substance: PROPYLTHIOURACIL
     Indication: Hyperthyroidism
     Dosage: 50 MILLIGRAM, Q8H
     Route: 065

REACTIONS (1)
  - Maternal exposure during pregnancy [Unknown]
